FAERS Safety Report 21436585 (Version 1)
Quarter: 2022Q4

REPORT INFORMATION
  Report Type: Report from Study
  Country: EG (occurrence: EG)
  Receive Date: 20221010
  Receipt Date: 20221010
  Transmission Date: 20230113
  Serious: Yes (Hospitalization)
  Sender: FDA-Public Use
  Company Number: EG-NOVARTISPH-NVSC2022EG227818

PATIENT
  Age: 50 Year
  Sex: Female

DRUGS (9)
  1. GILENYA [Suspect]
     Active Substance: FINGOLIMOD HYDROCHLORIDE
     Indication: Multiple sclerosis
     Dosage: 1 DOSAGE FORM, QD
     Route: 048
     Dates: start: 20220910
  2. EUTHYROX [Concomitant]
     Active Substance: LEVOTHYROXINE SODIUM
     Indication: Thyroid disorder
     Dosage: 1 DOSAGE FORM, (ONE TAB EVERY DAY FOR THREE DAYS PER A WEEK) (50 MG)
     Route: 048
     Dates: start: 2010
  3. EUTHYROX [Concomitant]
     Active Substance: LEVOTHYROXINE SODIUM
     Dosage: 1 DOSAGE FORM, (FOR 4 DAY PER THE WEEK) (100 MG)
     Route: 048
     Dates: start: 2010
  4. SYNJARDY [Concomitant]
     Active Substance: EMPAGLIFLOZIN\METFORMIN HYDROCHLORIDE
     Indication: Diabetes mellitus
     Dosage: 1 DOSAGE FORM, QD
     Route: 048
     Dates: start: 202202
  5. ATORVASTATIN CALCIUM\EZETIMIBE [Concomitant]
     Active Substance: ATORVASTATIN CALCIUM\EZETIMIBE
     Indication: Hyperlipidaemia
     Dosage: 1 DOSAGE FORM, QD
     Route: 048
     Dates: start: 202206
  6. BISOPROLOL FUMARATE [Concomitant]
     Active Substance: BISOPROLOL FUMARATE
     Indication: Heart rate
     Dosage: 1 DOSAGE FORM, QD
     Route: 048
     Dates: end: 20220910
  7. AMOXICILLIN\CLAVULANIC ACID [Concomitant]
     Active Substance: AMOXICILLIN\CLAVULANIC ACID
     Indication: Antibiotic therapy
     Dosage: 1 DOSAGE FORM, Q12H
     Route: 048
     Dates: start: 20220927
  8. AMBEZIM [Concomitant]
     Indication: Antiinflammatory therapy
     Dosage: 1 DOSAGE FORM, Q8H
     Route: 048
     Dates: start: 20220928
  9. CRESTOR [Concomitant]
     Active Substance: ROSUVASTATIN CALCIUM
     Indication: Hyperlipidaemia
     Dosage: 1 DOSAGE FORM, QD
     Route: 048
     Dates: end: 202202

REACTIONS (3)
  - Thyroid neoplasm [Unknown]
  - Abdominal pain upper [Not Recovered/Not Resolved]
  - Vision blurred [Not Recovered/Not Resolved]

NARRATIVE: CASE EVENT DATE: 20220901
